FAERS Safety Report 7180443-6 (Version None)
Quarter: 2010Q4

REPORT INFORMATION
  Report Type: 
  Country: None (occurrence: None)
  Receive Date: 20101221
  Receipt Date: 20101209
  Transmission Date: 20110411
  Serious: Yes (Other)
  Sender: FDA-Public Use
  Company Number: US-MYLANLABS-2010S1020380

PATIENT
  Age: 70 Year
  Sex: Female
  Weight: 68.95 kg

DRUGS (10)
  1. PERFOROMIST [Suspect]
     Indication: CHRONIC OBSTRUCTIVE PULMONARY DISEASE
     Route: 055
     Dates: start: 20100720, end: 20101001
  2. WARFARIN SODIUM [Concomitant]
     Dates: start: 20100729
  3. PREDNISONE [Concomitant]
     Dates: start: 20100729
  4. LEVAQUIN [Concomitant]
     Dates: start: 20100730
  5. THEOPHYLLINE-SR [Concomitant]
     Dates: start: 20100810
  6. CEFUROXIME [Concomitant]
     Dates: start: 20100819
  7. PREDNISONE [Concomitant]
     Dates: start: 20100819
  8. FUROSEMIDE [Concomitant]
     Dates: start: 20100819
  9. AMLODIPINE [Concomitant]
     Dates: start: 20100802
  10. SERTRALINE HYDROCHLORIDE [Concomitant]
     Dates: start: 20100823

REACTIONS (4)
  - CONVULSION [None]
  - DIPLEGIA [None]
  - FALL [None]
  - TREMOR [None]
